FAERS Safety Report 4292535-X (Version None)
Quarter: 2004Q1

REPORT INFORMATION
  Report Type: 
  Country: None (occurrence: None)
  Receive Date: 20040211
  Receipt Date: 20040211
  Transmission Date: 20041129
  Serious: Yes (Hospitalization)
  Sender: FDA-Public Use
  Company Number: None

PATIENT
  Age: 10 Year
  Sex: Male
  Weight: 69 kg

DRUGS (15)
  1. CYTOXAN [Suspect]
     Indication: BURKITT'S LYMPHOMA
     Dosage: 500 MG ONE TIME D IV
     Route: 042
     Dates: start: 20040127, end: 20040127
  2. AMLODIPINE [Concomitant]
  3. DIPHENHYDRAMINE HCL [Concomitant]
  4. FUROSEMIDE [Concomitant]
  5. VINCRISTINE [Concomitant]
  6. GRANISETRON [Concomitant]
  7. LEUCOVORIN CALCIUM [Concomitant]
  8. MESNA [Concomitant]
  9. METHOTREXATE [Concomitant]
  10. CYTARABINE [Concomitant]
  11. METYLPREDNISOLONE [Concomitant]
  12. MORPHINE [Concomitant]
  13. ONDANSETRON [Concomitant]
  14. PANTOPRAZOLE [Concomitant]
  15. RASBUTICASE [Concomitant]

REACTIONS (1)
  - CONVULSION [None]
